FAERS Safety Report 19266619 (Version 2)
Quarter: 2021Q3

REPORT INFORMATION
  Report Type: Spontaneous
  Country: JP (occurrence: JP)
  Receive Date: 20210517
  Receipt Date: 20210707
  Transmission Date: 20211014
  Serious: Yes (Other)
  Sender: FDA-Public Use
  Company Number: JP-BAYER-2021-118453

PATIENT
  Age: 38 Year
  Sex: Male

DRUGS (3)
  1. KOVALTRY [Suspect]
     Active Substance: ANTIHEMOPHILIC FACTOR, HUMAN RECOMBINANT
     Indication: FACTOR VIII DEFICIENCY
     Dosage: DAILY DOSE 2000 IU, 2?3 TIMES ONE WEEK
     Route: 042
     Dates: start: 20181011
  2. KOVALTRY [Suspect]
     Active Substance: ANTIHEMOPHILIC FACTOR, HUMAN RECOMBINANT
     Indication: FACTOR VIII DEFICIENCY
     Dosage: DAILY DOSE 2000 IU, 2?3 TIMES ONE WEEK
     Route: 042
     Dates: end: 20200115
  3. KOVALTRY [Suspect]
     Active Substance: ANTIHEMOPHILIC FACTOR, HUMAN RECOMBINANT
     Indication: HAEMOSTASIS
     Dosage: DAILY DOSE 2000 IU
     Route: 042
     Dates: start: 20190807, end: 20190807

REACTIONS (5)
  - Intentional product misuse [None]
  - Haemarthrosis [Recovered/Resolved]
  - Inappropriate schedule of product administration [None]
  - Osteoarthritis [Recovered/Resolved]
  - Arthralgia [Recovered/Resolved]

NARRATIVE: CASE EVENT DATE: 20190806
